FAERS Safety Report 8474602-X (Version None)
Quarter: 2012Q2

REPORT INFORMATION
  Report Type: 
  Country: None (occurrence: None)
  Receive Date: 20120621
  Receipt Date: 20120608
  Transmission Date: 20120825
  Serious: Yes (Other)
  Sender: FDA-Public Use
  Company Number: 2012MA007332

PATIENT
  Age: 57 Year
  Sex: Male

DRUGS (4)
  1. VENLAFAXINE HCL [Suspect]
     Dates: start: 20120326
  2. TIMODINE [Concomitant]
  3. ZOPICLONE [Concomitant]
  4. INFLUENZA VIRUS [Concomitant]

REACTIONS (2)
  - AFFECTIVE DISORDER [None]
  - TINNITUS [None]
